FAERS Safety Report 5628674-8 (Version None)
Quarter: 2008Q1

REPORT INFORMATION
  Report Type: 
  Country: None (occurrence: None)
  Receive Date: 20080215
  Receipt Date: 20080215
  Transmission Date: 20080703
  Serious: Yes (Life-Threatening, Hospitalization, Disabling, Other)
  Sender: FDA-Public Use
  Company Number: None

PATIENT
  Age: 42 Year
  Sex: Female
  Weight: 99.7913 kg

DRUGS (1)
  1. FENTANYL TRANSDERMAL SYSTEM [Suspect]
     Indication: PAIN
     Dosage: 75MCG/HR 1 PATCH EVERY 72H TOP
     Route: 061
     Dates: start: 20080212, end: 20080212

REACTIONS (2)
  - COMA [None]
  - PHARMACEUTICAL PRODUCT COMPLAINT [None]
